FAERS Safety Report 25219590 (Version 6)
Quarter: 2025Q3

REPORT INFORMATION
  Report Type: Spontaneous
  Country: EU (occurrence: EU)
  Receive Date: 20250421
  Receipt Date: 20250708
  Transmission Date: 20251021
  Serious: No
  Sender: PFIZER
  Company Number: EU-PFIZER INC-PV202500045515

PATIENT
  Age: 10 Year
  Sex: Female
  Weight: 30 kg

DRUGS (1)
  1. GENOTROPIN [Suspect]
     Active Substance: SOMATROPIN
     Indication: Dwarfism
     Dosage: 6 MG, TOTAL WEEKLY DOSE
     Route: 058
     Dates: start: 202402

REACTIONS (3)
  - Device material issue [Recovered/Resolved]
  - Device use error [Recovered/Resolved]
  - Drug dose omission by device [Recovered/Resolved]

NARRATIVE: CASE EVENT DATE: 20250413
